FAERS Safety Report 8433055-8 (Version None)
Quarter: 2012Q2

REPORT INFORMATION
  Report Type: 
  Country: None (occurrence: None)
  Receive Date: 20120613
  Receipt Date: 20120604
  Transmission Date: 20120825
  Serious: Yes (Hospitalization)
  Sender: FDA-Public Use
  Company Number: US-BRISTOL-MYERS SQUIBB COMPANY-16660417

PATIENT
  Age: 67 Year
  Sex: Female
  Weight: 71 kg

DRUGS (6)
  1. CLOPIDOGREL BISULFATE [Concomitant]
  2. FEXOFENADINE HCL [Concomitant]
  3. METFORMIN HCL [Concomitant]
  4. ISOSORBIDE DINITRATE [Concomitant]
  5. ERBITUX [Suspect]
     Indication: HEAD AND NECK CANCER
     Dosage: NO OF COURSES: 11
     Route: 042
     Dates: start: 20120307, end: 20120515
  6. MICARDIS [Concomitant]

REACTIONS (2)
  - CELLULITIS [None]
  - OEDEMA PERIPHERAL [None]
